FAERS Safety Report 9278526 (Version 8)
Quarter: 2015Q3

REPORT INFORMATION
  Report Type: Report from Study
  Country: US (occurrence: US)
  Receive Date: 20130508
  Receipt Date: 20150709
  Transmission Date: 20151125
  Serious: Yes (Other)
  Sender: FDA-Public Use
  Company Number: US-SANOFI-AVENTIS-2013SA045720

PATIENT
  Age: 56 Year
  Sex: Female
  Weight: 56.69 kg

DRUGS (8)
  1. CANBERRY TAB [Concomitant]
  2. AUBAGIO [Suspect]
     Active Substance: TERIFLUNOMIDE
     Indication: MULTIPLE SCLEROSIS
     Route: 048
     Dates: start: 20130330
  3. THYROXIN [Concomitant]
     Active Substance: LEVOTHYROXINE
     Indication: HYPOTHYROIDISM
     Dosage: START DATE: 20 YEARS AGO
  4. AMPYRA [Concomitant]
     Active Substance: DALFAMPRIDINE
     Indication: MULTIPLE SCLEROSIS
     Dosage: START DATE: 3 YEARS AGO
  5. GLUCOSAMINE [Concomitant]
     Active Substance: GLUCOSAMINE
  6. TAMSULOSIN [Concomitant]
     Active Substance: TAMSULOSIN
     Indication: URINARY INCONTINENCE
     Dosage: START DATE: 3 YEARS AGO
  7. VITAMINS NOS [Concomitant]
     Active Substance: VITAMINS
  8. FISH OIL [Concomitant]
     Active Substance: FISH OIL

REACTIONS (29)
  - Anxiety [Unknown]
  - Hyperpyrexia [Recovered/Resolved]
  - Muscular weakness [Recovering/Resolving]
  - Stress [Unknown]
  - Vision blurred [Not Recovered/Not Resolved]
  - Throat irritation [Recovered/Resolved]
  - Road traffic accident [Unknown]
  - Conjunctivitis [Recovered/Resolved]
  - Infection [Unknown]
  - Malaise [Unknown]
  - Migraine [Not Recovered/Not Resolved]
  - Pyrexia [Unknown]
  - Eye discharge [Recovered/Resolved]
  - Insomnia [Unknown]
  - Dizziness [Not Recovered/Not Resolved]
  - Cystitis [Unknown]
  - Nasopharyngitis [Recovered/Resolved]
  - Influenza [Unknown]
  - Upper respiratory tract infection [Unknown]
  - Sinusitis [Unknown]
  - Hepatic enzyme increased [Unknown]
  - Cough [Recovered/Resolved]
  - Alopecia [Not Recovered/Not Resolved]
  - Enzyme abnormality [Unknown]
  - Blood pressure increased [Unknown]
  - Fall [Unknown]
  - Nerve compression [Unknown]
  - Diarrhoea [Recovered/Resolved]
  - Balance disorder [Unknown]

NARRATIVE: CASE EVENT DATE: 201304
